FAERS Safety Report 17715467 (Version 3)
Quarter: 2020Q4

REPORT INFORMATION
  Report Type: Report from Study
  Country: CA (occurrence: CA)
  Receive Date: 20200427
  Receipt Date: 20201015
  Transmission Date: 20210113
  Serious: Yes (Other)
  Sender: FDA-Public Use
  Company Number: CA-HLS-202000398

PATIENT
  Age: 23 Year
  Sex: Female

DRUGS (7)
  1. VENLAFAXINE HCL [Concomitant]
     Active Substance: VENLAFAXINE HYDROCHLORIDE
     Indication: DEPRESSION
     Route: 065
  2. VITAMIN B6 [Concomitant]
     Active Substance: PYRIDOXINE HYDROCHLORIDE
     Dosage: QHS
     Route: 048
  3. OLANZAPINE. [Concomitant]
     Active Substance: OLANZAPINE
     Dosage: AT NIGHT
     Route: 060
  4. CLONAZEPAM. [Concomitant]
     Active Substance: CLONAZEPAM
     Dosage: 0.5 MG NIGHTLY?0.25 MG Q A,M.
     Route: 048
  5. VENLAFAXINE HCL [Concomitant]
     Active Substance: VENLAFAXINE HYDROCHLORIDE
     Indication: DEPRESSION
     Route: 048
  6. CLOZARIL [Suspect]
     Active Substance: CLOZAPINE
     Indication: SCHIZOPHRENIA
     Dosage: 100 MG; 2 TABLETS AT BEDTIME?25 MG: 1 TABLET
     Route: 048
     Dates: start: 20171122
  7. VENLAFAXINE HCL [Concomitant]
     Active Substance: VENLAFAXINE HYDROCHLORIDE
     Indication: DEPRESSION
     Route: 065

REACTIONS (15)
  - Electrocardiogram repolarisation abnormality [Recovered/Resolved]
  - Sinus bradycardia [Recovered/Resolved]
  - Sinus tachycardia [Recovered/Resolved]
  - Low density lipoprotein increased [Unknown]
  - Gamma-glutamyltransferase increased [Unknown]
  - Bundle branch block right [Recovered/Resolved]
  - Blood cholesterol increased [Unknown]
  - Blood creatine phosphokinase increased [Recovered/Resolved]
  - Haematocrit increased [Recovered/Resolved]
  - Electrocardiogram QT prolonged [Recovered/Resolved]
  - C-reactive protein increased [Recovered/Resolved]
  - High density lipoprotein increased [Unknown]
  - Electrocardiogram ST-T change [Recovered/Resolved]
  - Monocyte count increased [Recovered/Resolved]
  - Red blood cell count increased [Recovered/Resolved]

NARRATIVE: CASE EVENT DATE: 20171123
